FAERS Safety Report 16375630 (Version 2)
Quarter: 2019Q2

REPORT INFORMATION
  Report Type: Spontaneous
  Country: US (occurrence: US)
  Receive Date: 20190531
  Receipt Date: 20190626
  Transmission Date: 20190711
  Serious: Yes (Hospitalization, Other)
  Sender: FDA-Public Use
  Company Number: US-009507513-1905USA010325

PATIENT
  Age: 53 Year
  Sex: Male
  Weight: 63 kg

DRUGS (27)
  1. DILAUDID [Concomitant]
     Active Substance: HYDROMORPHONE HYDROCHLORIDE
  2. ZOFRAN [Concomitant]
     Active Substance: ONDANSETRON HYDROCHLORIDE
  3. INFLIXIMAB [Concomitant]
     Active Substance: INFLIXIMAB
  4. JAKAFI [Suspect]
     Active Substance: RUXOLITINIB
     Indication: GRAFT VERSUS HOST DISEASE IN GASTROINTESTINAL TRACT
     Dosage: 5 MILLIGRAM, Q48H(QOD)
     Route: 048
     Dates: start: 20190227
  5. ULTRAM [Concomitant]
     Active Substance: TRAMADOL HYDROCHLORIDE
  6. BENADRYL [Concomitant]
     Active Substance: DIPHENHYDRAMINE HYDROCHLORIDE
  7. SODIUM CHLORIDE. [Concomitant]
     Active Substance: SODIUM CHLORIDE
  8. VFEND [Concomitant]
     Active Substance: VORICONAZOLE
  9. JAKAFI [Suspect]
     Active Substance: RUXOLITINIB
     Dosage: 5 MILLIGRAM, QD
     Route: 065
     Dates: start: 20190313, end: 20190405
  10. PROGRAF [Concomitant]
     Active Substance: TACROLIMUS\TACROLIMUS ANHYDROUS
  11. MYCOSTATIN [Concomitant]
     Active Substance: NYSTATIN
  12. ENTOCORT EC [Concomitant]
     Active Substance: BUDESONIDE
  13. ALDACTONE [Concomitant]
     Active Substance: SPIRONOLACTONE
  14. BUDESONIDE. [Concomitant]
     Active Substance: BUDESONIDE
  15. ANTILYMPHOCYTE IMMUNOGLOBULIN [Concomitant]
     Active Substance: THYMOCYTE IMMUNE GLOBULIN NOS
  16. IMODIUM [Concomitant]
     Active Substance: LOPERAMIDE HYDROCHLORIDE
  17. TYLENOL [Concomitant]
     Active Substance: ACETAMINOPHEN
  18. SYNTHROID [Suspect]
     Active Substance: LEVOTHYROXINE SODIUM
     Indication: SECONDARY HYPOTHYROIDISM
     Dosage: 25 MICROGRAM, QD
     Route: 065
     Dates: end: 20190225
  19. PROTONIX [Concomitant]
     Active Substance: PANTOPRAZOLE SODIUM
  20. ZITHROMAX [Concomitant]
     Active Substance: AZITHROMYCIN DIHYDRATE
  21. CALCIUM CARBONATE. [Concomitant]
     Active Substance: CALCIUM CARBONATE
  22. PREGNYL [Suspect]
     Active Substance: CHORIOGONADOTROPIN ALFA
     Indication: GRAFT VERSUS HOST DISEASE
     Dosage: 2000 IUIU/M2, 2 XWEEK
     Route: 065
  23. FLORINEF ACETATE [Concomitant]
     Active Substance: FLUDROCORTISONE ACETATE
  24. JAKAFI [Suspect]
     Active Substance: RUXOLITINIB
     Indication: CHRONIC GRAFT VERSUS HOST DISEASE
     Dosage: 10 MILLIGRAM, BID
     Route: 065
     Dates: start: 20190111, end: 20190215
  25. SYNTHROID [Suspect]
     Active Substance: LEVOTHYROXINE SODIUM
     Dosage: 25 MICROGRAM, QD
     Route: 065
  26. DITROPAN [Concomitant]
     Active Substance: OXYBUTYNIN CHLORIDE
  27. SIMETHICONE (DIMETHICONE) [Concomitant]
     Active Substance: DIMETHICONE

REACTIONS (23)
  - Cytopenia [Recovering/Resolving]
  - Liver function test increased [Recovered/Resolved]
  - Lip dry [Unknown]
  - Secondary hypothyroidism [Recovering/Resolving]
  - Oedema peripheral [Unknown]
  - Large intestinal ulcer [Recovering/Resolving]
  - Thrombocytopenia [Unknown]
  - Fluid overload [Unknown]
  - Haemorrhage urinary tract [Unknown]
  - Cytomegalovirus viraemia [Recovered/Resolved]
  - BK virus infection [Recovered/Resolved]
  - Protein total decreased [Unknown]
  - Dry skin [Unknown]
  - Weight decreased [Unknown]
  - Off label use [Unknown]
  - Weight increased [Unknown]
  - Orthostatic hypotension [Unknown]
  - Adrenal insufficiency [Unknown]
  - Epstein-Barr viraemia [Recovered/Resolved]
  - Mucosal disorder [Unknown]
  - Diarrhoea [Recovering/Resolving]
  - Leukopenia [Recovering/Resolving]
  - Blood albumin decreased [Unknown]

NARRATIVE: CASE EVENT DATE: 2019
